FAERS Safety Report 7826026-3 (Version None)
Quarter: 2011Q4

REPORT INFORMATION
  Report Type: 
  Country: None (occurrence: None)
  Receive Date: 20111019
  Receipt Date: 20111014
  Transmission Date: 20120403
  Serious: Yes (Hospitalization, Other)
  Sender: FDA-Public Use
  Company Number: US-MERCK-1107USA01371

PATIENT
  Age: 72 Year
  Sex: Female

DRUGS (6)
  1. CALCIUM (UNSPECIFIED) [Concomitant]
     Route: 065
  2. VITAMIN D (UNSPECIFIED) [Concomitant]
     Route: 065
  3. FOSAMAX [Suspect]
     Route: 048
     Dates: start: 20070801, end: 20080801
  4. FOSAMAX [Suspect]
     Route: 048
     Dates: start: 20000501
  5. VITAMIN E [Concomitant]
     Route: 065
  6. CYANOCOBALAMIN [Concomitant]
     Route: 065

REACTIONS (27)
  - CARDIAC FAILURE CONGESTIVE [None]
  - INCISIONAL HERNIA [None]
  - INSOMNIA [None]
  - WEIGHT DECREASED [None]
  - DIVERTICULITIS [None]
  - OSTEOARTHRITIS [None]
  - OVARIAN MASS [None]
  - OEDEMA PERIPHERAL [None]
  - LOWER GASTROINTESTINAL HAEMORRHAGE [None]
  - HYPERTENSIVE HEART DISEASE [None]
  - HYPERTENSION [None]
  - FEMUR FRACTURE [None]
  - ATRIAL FIBRILLATION [None]
  - SCAPULA FRACTURE [None]
  - FALL [None]
  - ACNE [None]
  - TOOTH DISORDER [None]
  - ROSACEA [None]
  - HYPONATRAEMIA [None]
  - URINARY TRACT INFECTION [None]
  - GALLBLADDER DISORDER [None]
  - DIABETES MELLITUS [None]
  - CORONARY ARTERY DISEASE [None]
  - DEHYDRATION [None]
  - HYPERLIPIDAEMIA [None]
  - ENTEROCOCCAL INFECTION [None]
  - CHRONIC OBSTRUCTIVE PULMONARY DISEASE [None]
